FAERS Safety Report 7953744-9 (Version None)
Quarter: 2011Q4

REPORT INFORMATION
  Report Type: 
  Country: None (occurrence: None)
  Receive Date: 20111202
  Receipt Date: 20111123
  Transmission Date: 20120403
  Serious: Yes (Other)
  Sender: FDA-Public Use
  Company Number: US-US-EMD SERONO, INC.-7098171

PATIENT
  Sex: Female

DRUGS (2)
  1. REBIF [Suspect]
     Indication: PRODUCT USED FOR UNKNOWN INDICATION
     Route: 058
     Dates: start: 20100525, end: 20111001
  2. AMPYRA [Concomitant]
     Indication: BALANCE DISORDER

REACTIONS (3)
  - LIMB INJURY [None]
  - ROAD TRAFFIC ACCIDENT [None]
  - BLADDER DYSFUNCTION [None]
